FAERS Safety Report 7767192-8 (Version None)
Quarter: 2011Q3

REPORT INFORMATION
  Report Type: 
  Country: None (occurrence: None)
  Receive Date: 20110922
  Receipt Date: 20101229
  Transmission Date: 20111222
  Serious: No
  Sender: FDA-Public Use
  Company Number: PR-ASTRAZENECA-2010SE61181

PATIENT
  Age: 44 Year
  Sex: Female

DRUGS (2)
  1. SEROQUEL [Suspect]
     Indication: DEPRESSION
     Route: 048
     Dates: start: 20070101, end: 20101201
  2. SEROQUEL [Suspect]
     Route: 048
     Dates: start: 20070101, end: 20101201

REACTIONS (3)
  - FLUSHING [None]
  - DRUG DOSE OMISSION [None]
  - PAIN [None]
